FAERS Safety Report 7796998-4 (Version None)
Quarter: 2011Q4

REPORT INFORMATION
  Report Type: 
  Country: None (occurrence: None)
  Receive Date: 20111005
  Receipt Date: 20111005
  Transmission Date: 20120403
  Serious: No
  Sender: FDA-Public Use
  Company Number: None

PATIENT
  Age: 43 Year
  Weight: 79.378 kg

DRUGS (2)
  1. BONIVA [Suspect]
     Dosage: ONCE A MONTH
     Dates: start: 20050101, end: 20110101
  2. RECLAST [Concomitant]
     Dosage: ONCE A YEAR
     Dates: start: 20010301, end: 20110301

REACTIONS (4)
  - FALL [None]
  - ARTHRALGIA [None]
  - FOOT FRACTURE [None]
  - UNEVALUABLE EVENT [None]
